FAERS Safety Report 24310660 (Version 1)
Quarter: 2024Q3

REPORT INFORMATION
  Report Type: Spontaneous
  Country: SK (occurrence: SK)
  Receive Date: 20240912
  Receipt Date: 20240912
  Transmission Date: 20241017
  Serious: Yes (Other)
  Sender: SPARK THERAPEUTICS
  Company Number: SK-002147023-NVSC2024SK170892

PATIENT
  Age: 12 Year
  Sex: Male

DRUGS (4)
  1. LUXTURNA [Suspect]
     Active Substance: VORETIGENE NEPARVOVEC-RZYL
     Indication: Leber^s congenital amaurosis
     Dosage: UNK UNK, ONCE/SINGLE (LEFT EYE), SUBRETINAL USE
     Dates: start: 20220708, end: 20220708
  2. LUXTURNA [Suspect]
     Active Substance: VORETIGENE NEPARVOVEC-RZYL
     Dosage: UNK, ONCE/SINGLE (RIGHT EYE), SUBRETINAL USE
     Dates: start: 20220714, end: 20220714
  3. LUXTURNA [Suspect]
     Active Substance: VORETIGENE NEPARVOVEC-RZYL
     Indication: Leber^s congenital amaurosis
     Dosage: LEFT EYE
     Dates: start: 20220708, end: 20220708
  4. LUXTURNA [Suspect]
     Active Substance: VORETIGENE NEPARVOVEC-RZYL
     Dosage: RIGHT EYE
     Dates: start: 20220714, end: 20220714

REACTIONS (3)
  - Leber^s congenital amaurosis [Not Recovered/Not Resolved]
  - Disease progression [Not Recovered/Not Resolved]
  - Drug ineffective [Not Recovered/Not Resolved]

NARRATIVE: CASE EVENT DATE: 20230207
